FAERS Safety Report 10701031 (Version 9)
Quarter: 2017Q2

REPORT INFORMATION
  Report Type: Spontaneous
  Country: US (occurrence: US)
  Receive Date: 20150109
  Receipt Date: 20170424
  Transmission Date: 20170829
  Serious: Yes (Disabling, Other)
  Sender: FDA-Public Use
  Company Number: US-009507513-1204USA03734

PATIENT
  Sex: Male
  Weight: 97.96 kg

DRUGS (4)
  1. FINASTERIDE. [Suspect]
     Active Substance: FINASTERIDE
     Indication: ALOPECIA
     Dosage: 1 MG, UNKNOWN
     Route: 048
     Dates: start: 20080101, end: 2011
  2. PROPECIA [Suspect]
     Active Substance: FINASTERIDE
     Indication: ALOPECIA
     Dosage: 1 MG, QD
     Route: 048
     Dates: start: 20081113, end: 20090725
  3. FINASTERIDE. [Suspect]
     Active Substance: FINASTERIDE
     Dosage: 5 MG, UNKNOWN
     Route: 048
     Dates: start: 20091030, end: 20111205
  4. PROSCAR [Suspect]
     Active Substance: FINASTERIDE
     Indication: ALOPECIA
     Dosage: CUT INTO 1/4; 1.25 MG, QD
     Route: 048
     Dates: start: 2008, end: 2011

REACTIONS (36)
  - Tympanoplasty [Unknown]
  - Fatigue [Unknown]
  - Limb injury [Unknown]
  - Hypogonadism [Unknown]
  - Drug ineffective [Unknown]
  - Cognitive disorder [Not Recovered/Not Resolved]
  - Libido decreased [Not Recovered/Not Resolved]
  - Panic attack [Not Recovered/Not Resolved]
  - Hot flush [Unknown]
  - Intentional product misuse [Recovered/Resolved]
  - Penile size reduced [Unknown]
  - Ejaculation disorder [Not Recovered/Not Resolved]
  - Adverse event [Unknown]
  - Muscle atrophy [Unknown]
  - Arthritis [Unknown]
  - Fatigue [Unknown]
  - Drug ineffective [Unknown]
  - Anxiety [Not Recovered/Not Resolved]
  - Skin graft [Unknown]
  - Erectile dysfunction [Not Recovered/Not Resolved]
  - Hypercholesterolaemia [Unknown]
  - Memory impairment [Unknown]
  - Asthenia [Unknown]
  - Sexual dysfunction [Not Recovered/Not Resolved]
  - Depression [Not Recovered/Not Resolved]
  - Product use in unapproved indication [Recovered/Resolved]
  - Hormone level abnormal [Unknown]
  - Rectal polypectomy [Unknown]
  - Psychosexual disorder [Unknown]
  - Testicular atrophy [Unknown]
  - Insomnia [Not Recovered/Not Resolved]
  - Patellofemoral pain syndrome [Unknown]
  - Ejaculation failure [Not Recovered/Not Resolved]
  - Haemorrhoid operation [Unknown]
  - Semen discolouration [Recovered/Resolved]
  - Breast tenderness [Unknown]

NARRATIVE: CASE EVENT DATE: 2008
